FAERS Safety Report 6241561-X (Version None)
Quarter: 2009Q2

REPORT INFORMATION
  Report Type: 
  Country: None (occurrence: None)
  Receive Date: 20090623
  Receipt Date: 20090618
  Transmission Date: 20091009
  Serious: No
  Sender: FDA-Public Use
  Company Number: JP-EISAI INC.-E2090-00769-SPO-JP

PATIENT
  Age: 68 Year
  Sex: Female

DRUGS (1)
  1. EXCEGRAN [Suspect]
     Indication: DRUG USE FOR UNKNOWN INDICATION
     Route: 048

REACTIONS (1)
  - HYPERSENSITIVITY [None]
